FAERS Safety Report 8270450-4 (Version None)
Quarter: 2012Q2

REPORT INFORMATION
  Report Type: 
  Country: None (occurrence: None)
  Receive Date: 20120410
  Receipt Date: 20120402
  Transmission Date: 20120825
  Serious: Yes (Other)
  Sender: FDA-Public Use
  Company Number: US-UCBSA-054633

PATIENT
  Sex: Female

DRUGS (2)
  1. KEPPRA [Suspect]
     Route: 042
  2. KEPPRA [Suspect]
     Dosage: PREVIOUSLY WAS ON  TABLETS OR ORAL SOLUTION

REACTIONS (1)
  - GASTROINTESTINAL NECROSIS [None]
